FAERS Safety Report 6065699-5 (Version None)
Quarter: 2009Q1

REPORT INFORMATION
  Report Type: 
  Country: None (occurrence: None)
  Receive Date: 20090202
  Receipt Date: 20081231
  Transmission Date: 20090719
  Serious: Yes (Hospitalization)
  Sender: FDA-Public Use
  Company Number: 8040488

PATIENT
  Age: 8 Year
  Sex: Male

DRUGS (4)
  1. METHYLPHENIDATE HCL [Suspect]
     Indication: ATTENTION DEFICIT/HYPERACTIVITY DISORDER
     Dosage: 10 MG 3/D PO
     Route: 048
     Dates: start: 20081209
  2. METHYLPHENIDATE HCL [Suspect]
     Indication: ATTENTION DEFICIT/HYPERACTIVITY DISORDER
     Dates: start: 20081201
  3. MELATONIN [Concomitant]
  4. CUPLEX /00797901/ [Concomitant]

REACTIONS (3)
  - NO THERAPEUTIC RESPONSE [None]
  - OEDEMA PERIPHERAL [None]
  - RASH GENERALISED [None]
